FAERS Safety Report 11529453 (Version 1)
Quarter: 2015Q3

REPORT INFORMATION
  Report Type: Spontaneous
  Country: AU (occurrence: AU)
  Receive Date: 20150921
  Receipt Date: 20150921
  Transmission Date: 20151125
  Serious: Yes (Death, Other)
  Sender: FDA-Public Use
  Company Number: AU-PFIZER INC-2015312234

PATIENT
  Sex: Male

DRUGS (1)
  1. CHAMPIX [Suspect]
     Active Substance: VARENICLINE TARTRATE
     Indication: SMOKING CESSATION THERAPY

REACTIONS (7)
  - Organ failure [Unknown]
  - Urine odour abnormal [Unknown]
  - Abdominal pain [Unknown]
  - Completed suicide [Fatal]
  - Suicidal ideation [Fatal]
  - Abnormal dreams [Unknown]
  - Constipation [Unknown]
